FAERS Safety Report 26096207 (Version 1)
Quarter: 2025Q4

REPORT INFORMATION
  Report Type: Report from Study
  Country: US (occurrence: US)
  Receive Date: 20251127
  Receipt Date: 20251127
  Transmission Date: 20260118
  Serious: Yes (Other)
  Sender: ABBVIE
  Company Number: US-ABBVIE-6562826

PATIENT
  Age: 48 Year
  Sex: Female

DRUGS (1)
  1. SKYRIZI [Suspect]
     Active Substance: RISANKIZUMAB-RZAA
     Indication: Crohn^s disease
     Route: 058
     Dates: start: 20250903

REACTIONS (10)
  - Anorectal infection [Recovering/Resolving]
  - Rash papular [Recovering/Resolving]
  - Rash [Recovering/Resolving]
  - Peripheral swelling [Recovering/Resolving]
  - Night sweats [Recovering/Resolving]
  - Pain [Recovering/Resolving]
  - Pruritus [Recovering/Resolving]
  - Nasal congestion [Recovering/Resolving]
  - Chills [Recovered/Resolved]
  - Rectal haemorrhage [Recovering/Resolving]

NARRATIVE: CASE EVENT DATE: 20251107
